FAERS Safety Report 8733787 (Version 2)
Quarter: 2012Q4

REPORT INFORMATION
  Report Type: 
  Country: US (occurrence: US)
  Receive Date: 20120821
  Receipt Date: 20120831
  Transmission Date: 20130627
  Serious: Yes (Death, Other)
  Sender: FDA-Public Use
  Company Number: US-B.I. PHARMACEUTICALS,INC./RIDGEFIELD-2012-BP-20010BP

PATIENT
  Age: 57 Year
  Sex: Female
  Weight: 106 kg

DRUGS (5)
  1. PRADAXA [Suspect]
     Indication: CARDIAC DISORDER
     Dosage: 300 mg
     Dates: start: 20111121, end: 20120123
  2. SPIRONOLACTONE [Concomitant]
     Indication: CARDIAC FAILURE CONGESTIVE
  3. FUROSEMIDE [Concomitant]
     Indication: SWELLING
     Dosage: 40 mg
  4. FUROSEMIDE [Concomitant]
     Indication: OEDEMA
  5. SAVELLA [Concomitant]
     Indication: DEPRESSION
     Dosage: 100 mg

REACTIONS (2)
  - Haemorrhage [Fatal]
  - Abdominal wall haemorrhage [Unknown]
